FAERS Safety Report 20684528 (Version 1)
Quarter: 2022Q2

REPORT INFORMATION
  Report Type: Spontaneous
  Country: US (occurrence: None)
  Receive Date: 20220405
  Receipt Date: 20220405
  Transmission Date: 20220720
  Serious: Yes (Hospitalization)
  Sender: FDA-Public Use
  Company Number: None

PATIENT
  Sex: Female

DRUGS (1)
  1. SILDENAFIL [Suspect]
     Active Substance: SILDENAFIL
     Indication: Pulmonary hypertension
     Dosage: FREQUENCY : 3 TIMES A DAY;?OTHER ROUTE : G-TUBE;?
     Route: 050
     Dates: start: 202110

REACTIONS (1)
  - Hospitalisation [None]
